FAERS Safety Report 4616363-8 (Version None)
Quarter: 2005Q1

REPORT INFORMATION
  Report Type: 
  Country: None (occurrence: None)
  Receive Date: 20050321
  Receipt Date: 20050309
  Transmission Date: 20050727
  Serious: Yes (Death, Life-Threatening)
  Sender: FDA-Public Use
  Company Number: 2005EN000003

PATIENT
  Age: 72 Year
  Sex: Female

DRUGS (15)
  1. ABELCET [Suspect]
     Dates: start: 20041204, end: 20041206
  2. TEMAZEPAM [Concomitant]
  3. TYLENOL (CAPLET) [Concomitant]
  4. BENADRYL ^WARNER-LAMBERT^ /USA/ [Concomitant]
  5. DEMEROL [Concomitant]
  6. CAPTOPRIL [Concomitant]
  7. HEPARIN LOCK-FLUSH [Concomitant]
  8. INSULIN [Concomitant]
  9. VALTREX [Concomitant]
  10. POTASSIUM CHLORIDE [Concomitant]
  11. VANCOMYCIN [Concomitant]
  12. ZOSYN [Concomitant]
  13. PROTONIX [Concomitant]
  14. SPECIAL MOUTHWASH [Concomitant]
  15. MAGNESIUM OXALATE [Concomitant]

REACTIONS (3)
  - CARDIAC ARREST [None]
  - CHILLS [None]
  - PYREXIA [None]
